FAERS Safety Report 6380077-7 (Version None)
Quarter: 2009Q3

REPORT INFORMATION
  Report Type: 
  Country: None (occurrence: None)
  Receive Date: 20090929
  Receipt Date: 20090917
  Transmission Date: 20100115
  Serious: Yes (Life-Threatening, Hospitalization)
  Sender: FDA-Public Use
  Company Number: FR-BIOGENIDEC-2009BI025427

PATIENT
  Age: 40 Year
  Sex: Female
  Weight: 63 kg

DRUGS (14)
  1. TYSABRI [Suspect]
     Indication: MULTIPLE SCLEROSIS
     Route: 042
     Dates: start: 20080701, end: 20090704
  2. SKENAN [Concomitant]
  3. CYMBALTA [Concomitant]
  4. LYRICA [Concomitant]
  5. IBUPROFEN [Concomitant]
  6. LAMICTAL [Concomitant]
  7. OROCAL [Concomitant]
  8. PIASCLEDINE [Concomitant]
  9. LEVOTHYROXINE SODIUM [Concomitant]
  10. AERIUS [Concomitant]
  11. ACTISKENAN [Concomitant]
  12. NOCERTONE [Concomitant]
  13. RIVOTRIL [Concomitant]
  14. LIORESAL [Concomitant]

REACTIONS (2)
  - CARDIOGENIC SHOCK [None]
  - MYOCARDITIS [None]
